FAERS Safety Report 6654594-6 (Version None)
Quarter: 2010Q1

REPORT INFORMATION
  Report Type: 
  Country: None (occurrence: None)
  Receive Date: 20100326
  Receipt Date: 20100323
  Transmission Date: 20100710
  Serious: Yes (Other)
  Sender: FDA-Public Use
  Company Number: US-GILEAD-2009-0024461

PATIENT
  Sex: Male
  Weight: 105.33 kg

DRUGS (4)
  1. ATRIPLA [Suspect]
     Indication: HIV INFECTION
     Dates: start: 20080123
  2. AVALIDE [Concomitant]
  3. ASTELIN [Concomitant]
     Indication: RHINITIS ALLERGIC
  4. NASONEX [Concomitant]
     Indication: RHINITIS ALLERGIC

REACTIONS (3)
  - CARDIAC FAILURE CHRONIC [None]
  - CARDIOMYOPATHY [None]
  - GYNAECOMASTIA [None]
